FAERS Safety Report 6775476-5 (Version None)
Quarter: 2010Q2

REPORT INFORMATION
  Report Type: 
  Country: None (occurrence: None)
  Receive Date: 20100617
  Receipt Date: 20100614
  Transmission Date: 20101027
  Serious: Yes (Other)
  Sender: FDA-Public Use
  Company Number: US-BRISTOL-MYERS SQUIBB COMPANY-15037724

PATIENT
  Age: 73 Year
  Sex: Female
  Weight: 61 kg

DRUGS (3)
  1. AVAPRO [Suspect]
     Indication: HYPERTENSION
     Route: 048
     Dates: start: 20100323
  2. VALIUM [Suspect]
     Dosage: DF=5MG ? TABLET P.O
     Route: 048
  3. SYNTHROID [Concomitant]
     Dosage: STOPPED ON 15MAR10,RESUMED ON 25MAR10.

REACTIONS (7)
  - BLOOD PRESSURE INCREASED [None]
  - COORDINATION ABNORMAL [None]
  - DIZZINESS [None]
  - GAIT DISTURBANCE [None]
  - LETHARGY [None]
  - MUSCULAR WEAKNESS [None]
  - SYNCOPE [None]
